FAERS Safety Report 12138362 (Version 2)
Quarter: 2016Q2

REPORT INFORMATION
  Report Type: Report from Study
  Country: GR (occurrence: GR)
  Receive Date: 20160302
  Receipt Date: 20160414
  Transmission Date: 20160815
  Serious: Yes (Other)
  Sender: FDA-Public Use
  Company Number: PHHY2016GR027551

PATIENT
  Age: 51 Year
  Sex: Male

DRUGS (1)
  1. GILENYA [Suspect]
     Active Substance: FINGOLIMOD HYDROCHLORIDE
     Indication: MULTIPLE SCLEROSIS
     Dosage: 0.5 MG, QD
     Route: 048
     Dates: start: 20150330, end: 20160205

REACTIONS (2)
  - Renal mass [Not Recovered/Not Resolved]
  - Haemangioma [Not Recovered/Not Resolved]

NARRATIVE: CASE EVENT DATE: 20160205
